FAERS Safety Report 9570168 (Version 2)
Quarter: 2013Q3

REPORT INFORMATION
  Report Type: Spontaneous
  Country: US (occurrence: US)
  Receive Date: 20130930
  Receipt Date: 20130930
  Transmission Date: 20140515
  Serious: No
  Sender: FDA-Public Use
  Company Number: US-AMGEN-USASP2013056911

PATIENT
  Age: 37 Year
  Sex: Male
  Weight: 111.11 kg

DRUGS (2)
  1. ENBREL [Suspect]
     Indication: PRODUCT USED FOR UNKNOWN INDICATION
     Dosage: 50 MG, Q2WK
     Route: 058
  2. STELERA [Concomitant]
     Dosage: 45 MG, UNK

REACTIONS (1)
  - Drug ineffective [Unknown]
